FAERS Safety Report 9817687 (Version 1)
Quarter: 2014Q1

REPORT INFORMATION
  Report Type: Spontaneous
  Country: US (occurrence: None)
  Receive Date: 20140110
  Receipt Date: 20140110
  Transmission Date: 20141002
  Serious: Yes (Other)
  Sender: FDA-Public Use
  Company Number: None

PATIENT
  Age: 59 Year
  Sex: Female

DRUGS (1)
  1. FORTEO [Suspect]
     Dosage: INJECT 20 MCG UNDER THE SKIN DAILY
     Dates: start: 20131126

REACTIONS (6)
  - Trismus [None]
  - Blood pressure increased [None]
  - Heart rate increased [None]
  - Blood pressure decreased [None]
  - Nausea [None]
  - Vomiting [None]
